FAERS Safety Report 9300077 (Version 2)
Quarter: 2012Q4

REPORT INFORMATION
  Report Type: Spontaneous
  Country: FR (occurrence: None)
  Receive Date: 20121107
  Receipt Date: 20121128
  Transmission Date: 20130627
  Serious: Yes (Death, Life-Threatening)
  Sender: FDA-Public Use
  Company Number: 213521

PATIENT
  Age: 66 Year
  Sex: Male
  Weight: 70 kg

DRUGS (4)
  1. INNOHEP [Suspect]
     Indication: VENA CAVA THROMBOSIS
     Route: 058
     Dates: start: 20101119
  2. PLAVIX [Concomitant]
  3. INEXIUM I(ESOMEPRAZOLE MAGNESIUM) [Concomitant]
  4. SIMVASTATIN (SIMVASTATIN) [Concomitant]

REACTIONS (10)
  - Incorrect drug administration duration [None]
  - Drug ineffective [None]
  - Vena cava thrombosis [None]
  - Incorrect storage of drug [None]
  - Blood creatinine increased [None]
  - Ascites [None]
  - Pleural effusion [None]
  - Metastases to peritoneum [None]
  - Oesophageal carcinoma [None]
  - Malignant neoplasm progression [None]
